FAERS Safety Report 16530653 (Version 6)
Quarter: 2021Q1

REPORT INFORMATION
  Report Type: Other
  Country: AT (occurrence: AT)
  Receive Date: 20190704
  Receipt Date: 20210215
  Transmission Date: 20210419
  Serious: Yes (Death, Other)
  Sender: FDA-Public Use
  Company Number: AT-ROCHE-2346234

PATIENT
  Age: 61 Year
  Sex: Male
  Weight: 54 kg

DRUGS (7)
  1. RITUXIMAB. [Suspect]
     Active Substance: RITUXIMAB
     Indication: ACQUIRED HAEMOPHILIA
     Dosage: 4 DOSES
     Route: 065
     Dates: start: 20180511, end: 20180525
  2. PREDNISONE. [Suspect]
     Active Substance: PREDNISONE
     Indication: IMMUNOSUPPRESSION
     Route: 065
     Dates: start: 20180430, end: 20180614
  3. FEIBA [Concomitant]
     Active Substance: ANTI-INHIBITOR COAGULANT COMPLEX
     Indication: ACQUIRED HAEMOPHILIA
  4. RED BLOOD CELLS, CONCENTRATED [Concomitant]
     Active Substance: HUMAN RED BLOOD CELL
     Indication: ACQUIRED HAEMOPHILIA
  5. FACTOR VIIA [Concomitant]
     Active Substance: COAGULATION FACTOR VIIA HUMAN
     Indication: ACQUIRED HAEMOPHILIA
     Dates: start: 20180514
  6. EMICIZUMAB. [Suspect]
     Active Substance: EMICIZUMAB
     Indication: ACQUIRED HAEMOPHILIA
     Dosage: 14/JUN/2018: 105 MG TOTAL 6 APPLICATIONS
     Route: 058
     Dates: start: 20180510, end: 20180614
  7. RITUXIMAB. [Suspect]
     Active Substance: RITUXIMAB
     Indication: IMMUNOSUPPRESSION

REACTIONS (3)
  - Neutropenic sepsis [Recovered/Resolved]
  - Off label use [Unknown]
  - Intentional product use issue [Unknown]
